FAERS Safety Report 4471119-4 (Version None)
Quarter: 2004Q4

REPORT INFORMATION
  Report Type: 
  Country: None (occurrence: None)
  Receive Date: 20041008
  Receipt Date: 20040923
  Transmission Date: 20050328
  Serious: Yes (Life-Threatening, Other)
  Sender: FDA-Public Use
  Company Number: 2004S1002870

PATIENT
  Sex: Male
  Weight: 123.7413 kg

DRUGS (3)
  1. CLONIDINE HCL [Suspect]
     Indication: HYPERTENSION
     Dosage: 0.3MG BID ORAL
     Route: 048
     Dates: start: 20010701, end: 20021209
  2. FAMOTIDINE [Concomitant]
  3. BENAZEPRIL/HCTZ [Concomitant]

REACTIONS (7)
  - DIABETES MELLITUS NON-INSULIN-DEPENDENT [None]
  - DYSPEPSIA [None]
  - HEPATITIS [None]
  - HYPERLIPIDAEMIA [None]
  - HYPERTENSION [None]
  - OBESITY [None]
  - TINEA PEDIS [None]
